FAERS Safety Report 5696370-7 (Version None)
Quarter: 2008Q2

REPORT INFORMATION
  Report Type: 
  Country: None (occurrence: None)
  Receive Date: 20080408
  Receipt Date: 20080328
  Transmission Date: 20081010
  Serious: Yes (Other)
  Sender: FDA-Public Use
  Company Number: GB-PFIZER INC-2008028305

PATIENT
  Age: 44 Year
  Sex: Male
  Weight: 70 kg

DRUGS (5)
  1. PHENYTOIN [Suspect]
     Indication: EPILEPSY
     Dates: start: 20080302, end: 20080305
  2. ENOXAPARIN SODIUM [Concomitant]
  3. LEVETIRACETAM [Concomitant]
  4. PARACETAMOL [Concomitant]
  5. RANITIDINE [Concomitant]

REACTIONS (1)
  - RHABDOMYOLYSIS [None]
